FAERS Safety Report 8433533-1 (Version None)
Quarter: 2012Q2

REPORT INFORMATION
  Report Type: 
  Country: None (occurrence: None)
  Receive Date: 20120323
  Receipt Date: 20110708
  Transmission Date: 20120825
  Serious: Yes (Other)
  Sender: FDA-Public Use
  Company Number: 163-21880-11071454

PATIENT
  Age: 61 Year
  Sex: Male

DRUGS (2)
  1. REVLIMID [Suspect]
     Indication: MULTIPLE MYELOMA
     Dosage: 15 MG, DAILY FOR 28 DAYS, PO
     Route: 048
     Dates: start: 20100121
  2. BYSTOLIC [Concomitant]

REACTIONS (2)
  - NASOPHARYNGITIS [None]
  - DIARRHOEA [None]
